FAERS Safety Report 20436491 (Version 2)
Quarter: 2022Q1

REPORT INFORMATION
  Report Type: Spontaneous
  Country: FI (occurrence: None)
  Receive Date: 20220207
  Receipt Date: 20220215
  Transmission Date: 20220424
  Serious: Yes (Hospitalization, Other)
  Sender: FDA-Public Use
  Company Number: FI-ROCHE-3013033

PATIENT
  Age: 36 Year
  Sex: Female

DRUGS (2)
  1. OCREVUS [Suspect]
     Active Substance: OCRELIZUMAB
     Indication: Product used for unknown indication
     Dosage: NEXT 2ND DOSE ON: 04/JAN/2021 (2ND 300 MG INFUSION), 07/DEC/2021 (600 MG)
     Route: 065
     Dates: start: 20201221
  2. COMIRNATY [Concomitant]
     Active Substance: TOZINAMERAN
     Dates: start: 20211215

REACTIONS (3)
  - Pyrexia [Unknown]
  - Upper respiratory tract infection [Unknown]
  - Neutropenia [Recovered/Resolved]

NARRATIVE: CASE EVENT DATE: 20211216
